FAERS Safety Report 14145972 (Version 2)
Quarter: 2018Q1

REPORT INFORMATION
  Report Type: Report from Study
  Country: FR (occurrence: FR)
  Receive Date: 20171031
  Receipt Date: 20180309
  Transmission Date: 20180508
  Serious: Yes (Life-Threatening, Other)
  Sender: FDA-Public Use
  Company Number: FR-JNJFOC-20171033991

PATIENT
  Age: 60 Year
  Sex: Male
  Weight: 60 kg

DRUGS (14)
  1. DEXAMETHASONE. [Concomitant]
     Active Substance: DEXAMETHASONE
     Indication: LYMPHOMA
     Route: 065
  2. CYCLOPHOSPHAMIDE. [Concomitant]
     Active Substance: CYCLOPHOSPHAMIDE
     Route: 065
  3. CYTARABINE. [Concomitant]
     Active Substance: CYTARABINE
     Indication: LYMPHOMA
     Route: 065
  4. DOXORUBICIN [Concomitant]
     Active Substance: DOXORUBICIN
     Route: 065
  5. VINCRISTINE [Concomitant]
     Active Substance: VINCRISTINE
     Route: 065
  6. PREDNISOLONE. [Concomitant]
     Active Substance: PREDNISOLONE
     Route: 065
  7. IBRUTINIB [Suspect]
     Active Substance: IBRUTINIB
     Indication: B-CELL LYMPHOMA
     Route: 048
     Dates: start: 20160118, end: 20160324
  8. RITUXIMAB. [Concomitant]
     Active Substance: RITUXIMAB
     Indication: LYMPHOMA
     Route: 065
     Dates: start: 20160114, end: 20160310
  9. DEXAMETHASONE. [Concomitant]
     Active Substance: DEXAMETHASONE
     Indication: LYMPHOMA
     Route: 065
     Dates: start: 20160114, end: 20160310
  10. CISPLATIN. [Concomitant]
     Active Substance: CISPLATIN
     Indication: LYMPHOMA
     Route: 065
     Dates: start: 20160114, end: 20160310
  11. CARMUSTINE [Concomitant]
     Active Substance: CARMUSTINE
     Route: 065
  12. ETOPOSIDE. [Concomitant]
     Active Substance: ETOPOSIDE
     Route: 065
  13. CYTARABINE. [Concomitant]
     Active Substance: CYTARABINE
     Indication: LYMPHOMA
     Route: 065
     Dates: start: 20170114, end: 20170310
  14. MELPHALAN. [Concomitant]
     Active Substance: MELPHALAN
     Route: 065

REACTIONS (1)
  - Myelodysplastic syndrome [Not Recovered/Not Resolved]

NARRATIVE: CASE EVENT DATE: 20161013
